FAERS Safety Report 6379370-3 (Version None)
Quarter: 2009Q3

REPORT INFORMATION
  Report Type: 
  Country: None (occurrence: None)
  Receive Date: 20090928
  Receipt Date: 20090928
  Transmission Date: 20100115
  Serious: Yes (Hospitalization)
  Sender: FDA-Public Use
  Company Number: IT-ROXANE LABORATORIES, INC.-2009-DE-05908GD

PATIENT
  Age: 71 Year
  Sex: Female

DRUGS (8)
  1. SERTRALINE HCL [Suspect]
     Indication: DEPRESSED MOOD
     Dosage: 50 MG
     Dates: start: 20070917, end: 20071220
  2. AMISULPRIDE [Concomitant]
     Indication: DEPRESSED MOOD
     Dosage: 50 MG
  3. DIAZEPAM [Concomitant]
     Indication: DEPRESSED MOOD
     Dosage: 2 MG
  4. NICERGOLINE [Concomitant]
     Dosage: 30 MG
  5. AMLODIPINE [Concomitant]
     Dosage: 5 MG
  6. ASPIRIN [Concomitant]
     Dosage: 100 MG
  7. CANDESARTAN CILEXETIL [Concomitant]
     Dosage: 16 MG
  8. ATENOLOL [Concomitant]
     Dosage: 25 MG

REACTIONS (4)
  - BLOOD UREA INCREASED [None]
  - MOBILITY DECREASED [None]
  - MUSCULAR WEAKNESS [None]
  - RHABDOMYOLYSIS [None]
